FAERS Safety Report 18566438 (Version 2)
Quarter: 2020Q4

REPORT INFORMATION
  Report Type: Report from Study
  Country: CN (occurrence: CN)
  Receive Date: 20201201
  Receipt Date: 20201218
  Transmission Date: 20210114
  Serious: Yes (Other)
  Sender: FDA-Public Use
  Company Number: CN-ASTRAZENECA-2020SF53797

PATIENT
  Age: 23368 Day
  Sex: Male

DRUGS (63)
  1. CISPLATIN. [Suspect]
     Active Substance: CISPLATIN
     Indication: TRANSITIONAL CELL CARCINOMA
     Dosage: 70 MG2/M EVERY THREE WEEKS
     Route: 042
     Dates: start: 20201106, end: 20201106
  2. GEMCITABINE. [Suspect]
     Active Substance: GEMCITABINE
     Indication: TRANSITIONAL CELL CARCINOMA
     Dosage: 1000 MG2/M EVERY THREE WEEKS
     Route: 042
     Dates: start: 20201112, end: 20201112
  3. LEVOFLOXACIN. [Concomitant]
     Active Substance: LEVOFLOXACIN
     Indication: PROPHYLAXIS
     Route: 048
     Dates: start: 20200923, end: 20201001
  4. VITAMIN C INJECTION [Concomitant]
     Active Substance: ASCORBIC ACID
     Indication: NUTRITIONAL SUPPLEMENTATION
     Dosage: 1.0G ONCE/SINGLE ADMINISTRATION
     Route: 042
     Dates: start: 20201015, end: 20201015
  5. VITAMIN C INJECTION [Concomitant]
     Active Substance: ASCORBIC ACID
     Indication: FLUID REPLACEMENT
     Dosage: 1.0G ONCE/SINGLE ADMINISTRATION
     Route: 042
     Dates: start: 20201106, end: 20201106
  6. RECOMBINANT HUMAN GRANULOCYTE STIMULATING FACTOR NEEDLE [Concomitant]
     Indication: WHITE BLOOD CELL COUNT
     Dosage: 150.0UG/INHAL ONCE/SINGLE ADMINISTRATION
     Route: 058
     Dates: start: 20201020, end: 20201020
  7. ONDANSETRON HYDROCHLORIDE TABLETS [Concomitant]
     Active Substance: ONDANSETRON HYDROCHLORIDE
     Indication: PROPHYLAXIS
     Route: 048
     Dates: start: 20201108, end: 20201109
  8. OXYCEFORE POWDER NEEDLE [Concomitant]
     Indication: INFLAMMATION
     Route: 042
     Dates: start: 20201113, end: 20201114
  9. GRANISETRON NEEDLE [Concomitant]
     Indication: VOMITING
     Dosage: 3.0MG ONCE/SINGLE ADMINISTRATION
     Route: 042
     Dates: start: 20201111, end: 20201111
  10. CISPLATIN. [Suspect]
     Active Substance: CISPLATIN
     Indication: TRANSITIONAL CELL CARCINOMA
     Dosage: 70 MG2/M EVERY THREE WEEKS
     Route: 042
     Dates: start: 20201209, end: 20201209
  11. CELECOXIB CAPSULE [Concomitant]
     Active Substance: CELECOXIB
     Indication: PAIN
     Dosage: 200.0MG ONCE/SINGLE ADMINISTRATION
     Route: 048
     Dates: start: 20201029, end: 20201029
  12. RECOMBINANT HUMAN GRANULOCYTE STIMULATING FACTOR [Concomitant]
     Indication: LEUKOCYTOSIS
     Dosage: 200.0UG/INHAL ONCE/SINGLE ADMINISTRATION
     Route: 042
     Dates: start: 20201104, end: 20201104
  13. VITAMIN B6 SHOTS [Concomitant]
     Indication: NUTRITIONAL SUPPLEMENTATION
     Dosage: 100.0MG ONCE/SINGLE ADMINISTRATION
     Route: 042
     Dates: start: 20201106, end: 20201106
  14. INDOMETHACIN SUPPOSITORY [Concomitant]
     Indication: PYREXIA
     Dosage: 100.0MG ONCE/SINGLE ADMINISTRATION
     Route: 054
     Dates: start: 20201113, end: 20201113
  15. INDOMETHACIN SUPPOSITORY [Concomitant]
     Indication: HYPOTHERMIA
     Dosage: 100.0MG ONCE/SINGLE ADMINISTRATION
     Route: 054
     Dates: start: 20201113, end: 20201113
  16. INDOMETHACIN SUPPOSITORY [Concomitant]
     Indication: BODY TEMPERATURE
     Dosage: 100.0MG ONCE/SINGLE ADMINISTRATION
     Route: 054
     Dates: start: 20201116, end: 20201116
  17. OMEPRAZOLE INJECTION [Concomitant]
     Indication: GASTRITIS
     Route: 042
     Dates: start: 20201112, end: 20201114
  18. AMMONIUM CHLORIDE BROWN ORAL SOLUTION [Concomitant]
     Indication: COUGH
     Route: 048
     Dates: start: 20201113
  19. ERYTHROPOIETIN INJECTION [Concomitant]
     Indication: RED BLOOD CELL ABNORMALITY
     Dosage: 10000.0IU ONCE/SINGLE ADMINISTRATION
     Route: 058
     Dates: start: 20201114, end: 20201114
  20. GEMCITABINE. [Suspect]
     Active Substance: GEMCITABINE
     Indication: TRANSITIONAL CELL CARCINOMA
     Dosage: 1000 MG2/M EVERY THREE WEEKS
     Route: 042
     Dates: start: 20201021, end: 20201021
  21. INDOMETHACIN SUPPOSITORY [Concomitant]
     Indication: PYREXIA
     Dosage: 100.0MG ONCE/SINGLE ADMINISTRATION
     Route: 054
     Dates: start: 20201106, end: 20201106
  22. INDOMETHACIN SUPPOSITORY [Concomitant]
     Indication: HYPOTHERMIA
     Dosage: 100.0MG ONCE/SINGLE ADMINISTRATION
     Route: 054
     Dates: start: 20201108, end: 20201109
  23. INDOMETHACIN SUPPOSITORY [Concomitant]
     Indication: BODY TEMPERATURE
     Dosage: 100.0MG ONCE/SINGLE ADMINISTRATION
     Route: 054
     Dates: start: 20201108, end: 20201109
  24. VITAMIN B INJECTION [Concomitant]
     Indication: NUTRITIONAL SUPPLEMENTATION
     Dosage: 100.0MG ONCE/SINGLE ADMINISTRATION
     Route: 042
     Dates: start: 20201111, end: 20201111
  25. DURVALUMAB. [Suspect]
     Active Substance: DURVALUMAB
     Indication: TRANSITIONAL CELL CARCINOMA
     Route: 042
     Dates: start: 20201014, end: 20201014
  26. GEMCITABINE. [Suspect]
     Active Substance: GEMCITABINE
     Indication: TRANSITIONAL CELL CARCINOMA
     Dosage: 1000 MG2/M EVERY THREE WEEKS
     Route: 042
     Dates: start: 20201214, end: 20201214
  27. CELECOXIB CAPSULE [Concomitant]
     Active Substance: CELECOXIB
     Indication: PAIN
     Route: 048
     Dates: start: 20201013, end: 20201019
  28. VITAMIN C INJECTION [Concomitant]
     Active Substance: ASCORBIC ACID
     Indication: FLUID REPLACEMENT
     Dosage: 1.0G ONCE/SINGLE ADMINISTRATION
     Route: 042
     Dates: start: 20201015, end: 20201015
  29. VITAMIN C INJECTION [Concomitant]
     Active Substance: ASCORBIC ACID
     Indication: NUTRITIONAL SUPPLEMENTATION
     Dosage: 1.0G ONCE/SINGLE ADMINISTRATION
     Route: 042
     Dates: start: 20201111, end: 20201111
  30. INDOMETHACIN SUPPOSITORY [Concomitant]
     Indication: BODY TEMPERATURE
     Dosage: 100.0MG ONCE/SINGLE ADMINISTRATION
     Route: 054
     Dates: start: 20201106, end: 20201106
  31. INDOMETHACIN SUPPOSITORY [Concomitant]
     Indication: BODY TEMPERATURE
     Dosage: 100.0MG ONCE/SINGLE ADMINISTRATION
     Route: 054
     Dates: start: 20201111, end: 20201111
  32. INDOMETHACIN SUPPOSITORY [Concomitant]
     Indication: BODY TEMPERATURE
     Dosage: 100.0MG ONCE/SINGLE ADMINISTRATION
     Route: 054
     Dates: start: 20201113, end: 20201113
  33. DURVALUMAB. [Suspect]
     Active Substance: DURVALUMAB
     Indication: TRANSITIONAL CELL CARCINOMA
     Route: 042
     Dates: start: 20201208, end: 20201208
  34. CELECOXIB CAPSULE [Concomitant]
     Active Substance: CELECOXIB
     Indication: ANALGESIC THERAPY
     Route: 048
     Dates: start: 20201013, end: 20201019
  35. METOCLOPRAMIDE INJECTION [Concomitant]
     Active Substance: METOCLOPRAMIDE
     Indication: VOMITING
     Dosage: 10.0MG ONCE/SINGLE ADMINISTRATION
     Route: 030
     Dates: start: 20201015, end: 20201015
  36. INDOMETHACIN SUPPOSITORY [Concomitant]
     Indication: PYREXIA
     Dosage: 100.0MG ONCE/SINGLE ADMINISTRATION
     Route: 054
     Dates: start: 20201111, end: 20201111
  37. INDOMETHACIN SUPPOSITORY [Concomitant]
     Indication: HYPOTHERMIA
     Dosage: 100.0MG ONCE/SINGLE ADMINISTRATION
     Route: 054
     Dates: start: 20201111, end: 20201111
  38. DURVALUMAB. [Suspect]
     Active Substance: DURVALUMAB
     Indication: TRANSITIONAL CELL CARCINOMA
     Route: 042
     Dates: start: 20201105, end: 20201105
  39. CISPLATIN. [Suspect]
     Active Substance: CISPLATIN
     Indication: TRANSITIONAL CELL CARCINOMA
     Dosage: 70 MG2/M EVERY THREE WEEKS
     Route: 042
     Dates: start: 20201014, end: 20201014
  40. GEMCITABINE. [Suspect]
     Active Substance: GEMCITABINE
     Indication: TRANSITIONAL CELL CARCINOMA
     Dosage: 1000 MG2/M EVERY THREE WEEKS
     Route: 042
     Dates: start: 20201014, end: 20201014
  41. CELECOXIB CAPSULE [Concomitant]
     Active Substance: CELECOXIB
     Indication: ANALGESIC THERAPY
     Dosage: 200.0MG ONCE/SINGLE ADMINISTRATION
     Route: 048
     Dates: start: 20201029, end: 20201029
  42. VITAMIN B6 [Concomitant]
     Active Substance: PYRIDOXINE HYDROCHLORIDE
     Indication: INFUSION
     Dosage: 100.0MG ONCE/SINGLE ADMINISTRATION
     Route: 042
     Dates: start: 20201015, end: 20201015
  43. VITAMIN C INJECTION [Concomitant]
     Active Substance: ASCORBIC ACID
     Indication: NUTRITIONAL SUPPLEMENTATION
     Dosage: 1.0G ONCE/SINGLE ADMINISTRATION
     Route: 042
     Dates: start: 20201106, end: 20201106
  44. RECOMBINANT HUMAN GRANULOCYTE COLONY-STIMULATING FACTOR [Concomitant]
     Active Substance: GRANULOCYTE COLONY-STIMULATING FACTOR NOS
     Indication: WHITE BLOOD CELL COUNT
     Dosage: 200.0UG/INHAL ONCE/SINGLE ADMINISTRATION
     Route: 058
     Dates: start: 20201110, end: 20201110
  45. BUDESONIDE INHALER [Concomitant]
     Indication: COUGH
     Route: 045
     Dates: start: 20201113, end: 20201114
  46. GEMCITABINE. [Suspect]
     Active Substance: GEMCITABINE
     Indication: TRANSITIONAL CELL CARCINOMA
     Dosage: 1000 MG2/M EVERY THREE WEEKS
     Route: 042
     Dates: start: 20201208, end: 20201208
  47. BERBERINE TABLETS [Concomitant]
     Indication: OLIGURIA
     Dosage: 300.0MG ONCE/SINGLE ADMINISTRATION
     Route: 048
     Dates: start: 20201015, end: 20201015
  48. METRONIDAZOLE TABLETS [Concomitant]
     Active Substance: METRONIDAZOLE
     Indication: INFLAMMATION
     Route: 048
     Dates: start: 20201019, end: 20201021
  49. INDOMETHACIN SUPPOSITORY [Concomitant]
     Indication: HYPOTHERMIA
     Dosage: 100.0MG ONCE/SINGLE ADMINISTRATION
     Route: 054
     Dates: start: 20201106, end: 20201106
  50. INDOMETHACIN SUPPOSITORY [Concomitant]
     Indication: PYREXIA
     Dosage: 100.0MG ONCE/SINGLE ADMINISTRATION
     Route: 054
     Dates: start: 20201116, end: 20201116
  51. PALOSETRON HYDROCHLORIDE INJECTION [Concomitant]
     Indication: NAUSEA
     Dosage: 75.0UG/INHAL ONCE/SINGLE ADMINISTRATION
     Route: 042
     Dates: start: 20201106, end: 20201106
  52. GEMCITABINE. [Suspect]
     Active Substance: GEMCITABINE
     Indication: TRANSITIONAL CELL CARCINOMA
     Dosage: 1000 MG2/M EVERY THREE WEEKS
     Route: 042
     Dates: start: 20201105, end: 20201105
  53. CELECOXIB CAPSULE [Concomitant]
     Active Substance: CELECOXIB
     Indication: ANALGESIC THERAPY
     Route: 048
     Dates: start: 20201004, end: 20201012
  54. CELECOXIB CAPSULE [Concomitant]
     Active Substance: CELECOXIB
     Indication: PAIN
     Route: 048
     Dates: start: 20201004, end: 20201012
  55. VITAMIN C INJECTION [Concomitant]
     Active Substance: ASCORBIC ACID
     Indication: FLUID REPLACEMENT
     Dosage: 1.0G ONCE/SINGLE ADMINISTRATION
     Route: 042
     Dates: start: 20201106, end: 20201106
  56. VITAMIN C INJECTION [Concomitant]
     Active Substance: ASCORBIC ACID
     Indication: NUTRITIONAL SUPPLEMENTATION
     Dosage: 1.0G ONCE/SINGLE ADMINISTRATION
     Route: 042
     Dates: start: 20201106, end: 20201106
  57. VITAMIN C INJECTION [Concomitant]
     Active Substance: ASCORBIC ACID
     Indication: FLUID REPLACEMENT
     Dosage: 1.0G ONCE/SINGLE ADMINISTRATION
     Route: 042
     Dates: start: 20201111, end: 20201111
  58. RECOMBINANT HUMAN GRANULOCYTE STIMULATING FACTOR NEEDLE [Concomitant]
     Indication: LEUKOCYTOSIS
     Dosage: 150.0UG/INHAL ONCE/SINGLE ADMINISTRATION
     Route: 058
     Dates: start: 20201020, end: 20201020
  59. INDOMETHACIN SUPPOSITORY [Concomitant]
     Indication: PYREXIA
     Dosage: 100.0MG ONCE/SINGLE ADMINISTRATION
     Route: 054
     Dates: start: 20201108, end: 20201109
  60. INDOMETHACIN SUPPOSITORY [Concomitant]
     Indication: HYPOTHERMIA
     Dosage: 100.0MG ONCE/SINGLE ADMINISTRATION
     Route: 054
     Dates: start: 20201116, end: 20201116
  61. ONDANSETRON HYDROCHLORIDE TABLETS [Concomitant]
     Active Substance: ONDANSETRON HYDROCHLORIDE
     Indication: VOMITING
     Route: 048
     Dates: start: 20201107, end: 20201107
  62. ONDANSETRON HYDROCHLORIDE TABLETS [Concomitant]
     Active Substance: ONDANSETRON HYDROCHLORIDE
     Indication: PROPHYLAXIS
     Route: 048
     Dates: start: 20201107, end: 20201107
  63. ONDANSETRON HYDROCHLORIDE TABLETS [Concomitant]
     Active Substance: ONDANSETRON HYDROCHLORIDE
     Indication: VOMITING
     Route: 048
     Dates: start: 20201108, end: 20201109

REACTIONS (1)
  - Myelosuppression [Recovered/Resolved]

NARRATIVE: CASE EVENT DATE: 20201118
